FAERS Safety Report 8384503-3 (Version None)
Quarter: 2012Q2

REPORT INFORMATION
  Report Type: 
  Country: None (occurrence: None)
  Receive Date: 20120524
  Receipt Date: 20120514
  Transmission Date: 20120825
  Serious: Yes (Hospitalization, Other)
  Sender: FDA-Public Use
  Company Number: US-ELI_LILLY_AND_COMPANY-US201110002599

PATIENT
  Sex: Male
  Weight: 78 kg

DRUGS (11)
  1. POTASSIUM CHLORIDE [Concomitant]
  2. LOSARTAN POTASSIUM AND HYDROCHLOROTHIAZIDE [Concomitant]
     Dosage: UNK, UNKNOWN
  3. EFFIENT [Suspect]
     Indication: STENT PLACEMENT
     Dosage: 10 MG, QD
     Dates: start: 20110901, end: 20111006
  4. METOPROLOL [Concomitant]
     Dosage: UNK, UNKNOWN
  5. LIPITOR [Concomitant]
  6. EFFIENT [Suspect]
     Dosage: 5 MG, QD
     Dates: start: 20120501
  7. LASIX [Concomitant]
  8. EFFIENT [Suspect]
     Dosage: 10 MG, QD
     Dates: start: 20120301
  9. ISOSORBIDE DINITRATE [Concomitant]
  10. VYTORIN [Concomitant]
     Dosage: UNK, UNKNOWN
  11. PROTONIX [Concomitant]
     Dosage: UNK, UNKNOWN

REACTIONS (8)
  - PULMONARY OEDEMA [None]
  - VITREOUS FLOATERS [None]
  - DYSPNOEA [None]
  - WRONG TECHNIQUE IN DRUG USAGE PROCESS [None]
  - FAECES DISCOLOURED [None]
  - GASTROINTESTINAL HAEMORRHAGE [None]
  - ANAEMIA [None]
  - MELAENA [None]
